FAERS Safety Report 24082123 (Version 1)
Quarter: 2024Q3

REPORT INFORMATION
  Report Type: Spontaneous
  Country: IN (occurrence: IN)
  Receive Date: 20240712
  Receipt Date: 20240712
  Transmission Date: 20241017
  Serious: Yes (Other)
  Sender: ENDO
  Company Number: IN-ENDO USA, INC.-2024-002838

PATIENT
  Age: 15 Year
  Sex: Male

DRUGS (2)
  1. RISPERIDONE [Suspect]
     Active Substance: RISPERIDONE
     Indication: Schizophrenia
     Dosage: 4 MILLIGRAM, UNKNOWN
     Route: 065
  2. RISPERIDONE [Suspect]
     Active Substance: RISPERIDONE
     Dosage: UNK UNKNOWN, UNKNOWN (TAPERED DOSE)
     Route: 065

REACTIONS (1)
  - Serotonin syndrome [Recovered/Resolved]
